FAERS Safety Report 9494355 (Version 1)
Quarter: 2013Q3

REPORT INFORMATION
  Report Type: Spontaneous
  Country: US (occurrence: None)
  Receive Date: 20130828
  Receipt Date: 20130828
  Transmission Date: 20140515
  Serious: Yes (Other)
  Sender: FDA-Public Use
  Company Number: TPA2013A07815

PATIENT
  Age: 52 Year
  Sex: Male
  Weight: 86.18 kg

DRUGS (9)
  1. ACTOS (PIOGLITAZONE HYDROCHLORIDE) [Suspect]
     Indication: DIABETES MELLITUS
     Route: 048
     Dates: start: 2005, end: 2011
  2. OMEPRAZOLE (OMEPRAZOLE) [Concomitant]
  3. PLAVIIX (CLOPIDOGREL BISULFATE) [Concomitant]
  4. VERAPAMIL (VERAPAMIL [Concomitant]
  5. CRESTOR (ROSUVASTATIN CALCIUM) [Concomitant]
  6. ISOSORBIDE (ISOSORBIDE) [Concomitant]
  7. TOPAMAX (TOPIRAMATE) [Concomitant]
  8. HYDROCODONE AND ACETAMINOPH (PARACETMOL, HYDROCODONE BITARTRATE) (TABLETS) [Concomitant]
  9. AMBIEN [Concomitant]

REACTIONS (3)
  - Fall [None]
  - Hip fracture [None]
  - Somnambulism [None]
